FAERS Safety Report 23664646 (Version 1)
Quarter: 2024Q1

REPORT INFORMATION
  Report Type: Spontaneous
  Country: US (occurrence: None)
  Receive Date: 20240322
  Receipt Date: 20240322
  Transmission Date: 20240410
  Serious: No
  Sender: FDA-Public Use
  Company Number: None

PATIENT
  Age: 33 Year
  Sex: Female
  Weight: 55 kg

DRUGS (1)
  1. MAVENCLAD [Suspect]
     Active Substance: CLADRIBINE
     Dosage: FREQUENCY : DAILY;?
     Route: 048
     Dates: start: 20240220, end: 20240225

REACTIONS (1)
  - Urinary hesitation [None]

NARRATIVE: CASE EVENT DATE: 20240322
